FAERS Safety Report 7750516-5 (Version None)
Quarter: 2011Q3

REPORT INFORMATION
  Report Type: 
  Country: None (occurrence: None)
  Receive Date: 20110912
  Receipt Date: 20110829
  Transmission Date: 20111222
  Serious: Yes (Other)
  Sender: FDA-Public Use
  Company Number: AUR-APL-2011-04906

PATIENT
  Age: 22 Year
  Sex: Female
  Weight: 159 kg

DRUGS (2)
  1. SERTRALINE HYDROCHLORIDE [Concomitant]
  2. RISPERIDONE [Suspect]
     Indication: PRODUCT USED FOR UNKNOWN INDICATION
     Dosage: 1 MG (1 MG,1 IN 1 D)

REACTIONS (7)
  - BENIGN INTRACRANIAL HYPERTENSION [None]
  - DIPLOPIA [None]
  - VISUAL IMPAIRMENT [None]
  - VITH NERVE PARALYSIS [None]
  - HEADACHE [None]
  - WEIGHT INCREASED [None]
  - RETINOPATHY [None]
